FAERS Safety Report 10683972 (Version 3)
Quarter: 2015Q1

REPORT INFORMATION
  Report Type: Report from Study
  Country: SE (occurrence: SE)
  Receive Date: 20141230
  Receipt Date: 20150109
  Transmission Date: 20150720
  Serious: Yes (Hospitalization, Other)
  Sender: FDA-Public Use
  Company Number: PHHO2014SE017186

PATIENT
  Age: 73 Year
  Sex: Male
  Weight: 92 kg

DRUGS (6)
  1. RIMEXOLONE [Concomitant]
     Active Substance: RIMEXOLONE
     Indication: POSTOPERATIVE CARE
     Dosage: UNK GTT, QD
     Route: 065
  2. OMEPRAZOL//OMEPRAZOLE [Concomitant]
     Indication: GASTRITIS
     Dosage: 20 MG, QD
     Route: 065
  3. LOSARTAN [Concomitant]
     Active Substance: LOSARTAN
     Dosage: 25 MG, UNK
     Route: 065
     Dates: start: 20141229, end: 20141229
  4. LDK378 [Suspect]
     Active Substance: CERITINIB
     Indication: NON-SMALL CELL LUNG CANCER
     Dosage: 750 MG, UNK
     Route: 048
     Dates: start: 20140610, end: 20141223
  5. LATANOPROST. [Concomitant]
     Active Substance: LATANOPROST
     Indication: GLAUCOMA
     Dosage: UNK GTT, QD
     Route: 065
  6. LOSARTAN [Concomitant]
     Active Substance: LOSARTAN
     Indication: HYPERTENSION
     Dosage: 50 MG, UNK
     Route: 065
     Dates: start: 20140630, end: 20141228

REACTIONS (6)
  - Electrocardiogram QT prolonged [Recovered/Resolved]
  - Dehydration [Recovered/Resolved]
  - Pneumonia [Recovering/Resolving]
  - Hypotension [Recovered/Resolved]
  - Nodal rhythm [Recovered/Resolved]
  - Atrial fibrillation [Recovered/Resolved]

NARRATIVE: CASE EVENT DATE: 20141121
